FAERS Safety Report 6558146-8 (Version None)
Quarter: 2010Q1

REPORT INFORMATION
  Report Type: 
  Country: None (occurrence: None)
  Receive Date: 20100129
  Receipt Date: 20100118
  Transmission Date: 20100710
  Serious: Yes (Life-Threatening, Hospitalization, Disabling)
  Sender: FDA-Public Use
  Company Number: B0629604A

PATIENT
  Sex: Female

DRUGS (4)
  1. KREDEX [Suspect]
     Indication: CARDIAC FAILURE
     Dosage: 2G PER DAY
     Route: 048
     Dates: start: 20070101
  2. ALDACTONE [Concomitant]
     Route: 065
  3. RENITEC [Concomitant]
     Route: 065
  4. LASILIX [Concomitant]
     Route: 065

REACTIONS (1)
  - CARDIAC FAILURE [None]
